FAERS Safety Report 4361705-4 (Version None)
Quarter: 2004Q2

REPORT INFORMATION
  Report Type: 
  Country: None (occurrence: None)
  Receive Date: 20040521
  Receipt Date: 20040428
  Transmission Date: 20050107
  Serious: No
  Sender: FDA-Public Use
  Company Number: US-GLAXOSMITHKLINE-A0508748A

PATIENT
  Age: 42 Year
  Sex: Male

DRUGS (3)
  1. WELLBUTRIN [Suspect]
     Indication: DEPRESSION
     Dosage: 150MG PER DAY
     Route: 048
     Dates: start: 20040425
  2. ZOLOFT [Concomitant]
  3. TRAZODONE HCL [Concomitant]

REACTIONS (3)
  - DIZZINESS [None]
  - MUSCLE CRAMP [None]
  - RASH PAPULAR [None]
